FAERS Safety Report 11783212 (Version 3)
Quarter: 2016Q1

REPORT INFORMATION
  Report Type: Report from Study
  Country: US (occurrence: US)
  Receive Date: 20151127
  Receipt Date: 20160216
  Transmission Date: 20160525
  Serious: Yes (Other)
  Sender: FDA-Public Use
  Company Number: PHEH2015US024129

PATIENT
  Age: 47 Year
  Sex: Female

DRUGS (8)
  1. DEPAKOTE [Concomitant]
     Active Substance: DIVALPROEX SODIUM
     Indication: PRODUCT USED FOR UNKNOWN INDICATION
     Route: 065
  2. MULTIVITAMINS [Concomitant]
     Active Substance: VITAMINS
     Indication: PRODUCT USED FOR UNKNOWN INDICATION
     Route: 065
  3. AFINITOR [Suspect]
     Active Substance: EVEROLIMUS
     Indication: ANGIOMYOLIPOMA
     Dosage: 5 MG, DAILY
     Route: 048
     Dates: start: 20151101, end: 20151117
  4. NEUROTIN [Concomitant]
     Active Substance: GABAPENTIN
     Indication: PRODUCT USED FOR UNKNOWN INDICATION
     Route: 065
  5. ZINC [Concomitant]
     Active Substance: ZINC\ZINC CHLORIDE
     Indication: PRODUCT USED FOR UNKNOWN INDICATION
     Route: 065
  6. VITAMIN D [Concomitant]
     Active Substance: CHOLECALCIFEROL
     Indication: PRODUCT USED FOR UNKNOWN INDICATION
     Route: 065
  7. INSULIN [Concomitant]
     Active Substance: INSULIN NOS
     Indication: PRODUCT USED FOR UNKNOWN INDICATION
     Route: 065
  8. SYNTHROID [Concomitant]
     Active Substance: LEVOTHYROXINE SODIUM
     Indication: PRODUCT USED FOR UNKNOWN INDICATION
     Route: 065

REACTIONS (21)
  - Eating disorder [Unknown]
  - Blood glucose increased [Unknown]
  - Anaemia [Unknown]
  - Pain [Unknown]
  - Screaming [Unknown]
  - Lip blister [Unknown]
  - Leukopenia [Unknown]
  - Retching [Unknown]
  - Hypertriglyceridaemia [Unknown]
  - Gastrointestinal motility disorder [Unknown]
  - Fear [Unknown]
  - Protein urine present [Unknown]
  - Cough [Recovering/Resolving]
  - Mouth ulceration [Unknown]
  - Blood pressure increased [Unknown]
  - Crying [Unknown]
  - Seizure [Unknown]
  - Thrombocytopenia [Recovering/Resolving]
  - Stomatitis [Not Recovered/Not Resolved]
  - Concomitant disease aggravated [Unknown]
  - Fatigue [Unknown]

NARRATIVE: CASE EVENT DATE: 20151113
